FAERS Safety Report 17056288 (Version 1)
Quarter: 2019Q4

REPORT INFORMATION
  Report Type: Report from Study
  Country: None (occurrence: GR)
  Receive Date: 20191121
  Receipt Date: 20191121
  Transmission Date: 20200122
  Serious: Yes (Death)
  Sender: FDA-Public Use
  Company Number: GR-ABBVIE-19K-066-3009176-00

PATIENT
  Sex: Male
  Weight: 82 kg

DRUGS (2)
  1. DUODOPA [Suspect]
     Active Substance: CARBIDOPA\LEVODOPA
     Indication: PARKINSON^S DISEASE
     Dosage: MORNING DOSE: 5ML; CONTINUOUS RATE: 0.6ML/H EXTRA DOSE: 0.1ML
     Route: 050
     Dates: start: 20160607
  2. MARIPRAX [Concomitant]
     Indication: PARKINSON^S DISEASE
     Route: 048

REACTIONS (1)
  - Myocardial infarction [Fatal]
